FAERS Safety Report 20411108 (Version 1)
Quarter: 2022Q1

REPORT INFORMATION
  Report Type: Spontaneous
  Country: US (occurrence: None)
  Receive Date: 20220201
  Receipt Date: 20220201
  Transmission Date: 20220423
  Serious: No
  Sender: FDA-Public Use
  Company Number: None

PATIENT
  Age: 62 Year
  Sex: Male
  Weight: 90 kg

DRUGS (1)
  1. SIMVASTATIN [Suspect]
     Active Substance: SIMVASTATIN
     Indication: Cardiovascular event prophylaxis
     Dosage: FREQUENCY : DAILY;?
     Route: 048
     Dates: start: 20211122

REACTIONS (2)
  - Myalgia [None]
  - Angina pectoris [None]

NARRATIVE: CASE EVENT DATE: 20211202
